FAERS Safety Report 8279397-0 (Version None)
Quarter: 2012Q2

REPORT INFORMATION
  Report Type: 
  Country: None (occurrence: None)
  Receive Date: 20120412
  Receipt Date: 20110809
  Transmission Date: 20120825
  Serious: No
  Sender: FDA-Public Use
  Company Number: US-ASTRAZENECA-2011SE34417

PATIENT
  Age: 42 Year
  Sex: Male
  Weight: 81.6 kg

DRUGS (6)
  1. CARBIDOPA [Concomitant]
     Indication: RESTLESS LEGS SYNDROME
  2. NEXIUM [Suspect]
     Indication: GASTROOESOPHAGEAL REFLUX DISEASE
     Route: 048
     Dates: start: 20090101
  3. PERCOCET [Concomitant]
  4. ACETAMINOPHEN [Concomitant]
  5. NEXIUM [Suspect]
     Indication: GASTRIC ULCER
     Route: 048
     Dates: start: 20090101
  6. NEXIUM [Suspect]
     Indication: HIATUS HERNIA
     Route: 048
     Dates: start: 20090101

REACTIONS (19)
  - ANXIETY [None]
  - COUGH [None]
  - DIARRHOEA [None]
  - PAINFUL DEFAECATION [None]
  - DRY MOUTH [None]
  - ABDOMINAL PAIN [None]
  - DRUG DOSE OMISSION [None]
  - BONE PAIN [None]
  - FLATULENCE [None]
  - ABDOMINAL DISCOMFORT [None]
  - HEADACHE [None]
  - DYSPEPSIA [None]
  - PAIN IN EXTREMITY [None]
  - RESTLESS LEGS SYNDROME [None]
  - ARTHRALGIA [None]
  - PNEUMONIA [None]
  - BRONCHITIS [None]
  - GLAUCOMA [None]
  - CONSTIPATION [None]
